FAERS Safety Report 8016664-X (Version None)
Quarter: 2012Q1

REPORT INFORMATION
  Report Type: 
  Country: None (occurrence: None)
  Receive Date: 20120102
  Receipt Date: 20111222
  Transmission Date: 20120608
  Serious: Yes (Hospitalization, Other)
  Sender: FDA-Public Use
  Company Number: US-BRISTOL-MYERS SQUIBB COMPANY-16273401

PATIENT
  Age: 63 Year
  Sex: Female
  Weight: 54 kg

DRUGS (4)
  1. BELATACEPT [Suspect]
     Indication: RENAL TRANSPLANT
     Route: 042
     Dates: start: 20070224
  2. MYCOPHENOLATE MOFETIL (CELLCEPT) [Suspect]
     Dates: start: 20070224, end: 20111221
  3. LISINOPRIL [Concomitant]
     Dates: start: 20070905
  4. PREDNISONE [Suspect]
     Indication: RENAL TRANSPLANT
     Dates: start: 20070905

REACTIONS (4)
  - MALIGNANT PLEURAL EFFUSION [None]
  - NON-SMALL CELL LUNG CANCER [None]
  - PULMONARY OEDEMA [None]
  - PLEURAL EFFUSION [None]
